FAERS Safety Report 21855178 (Version 1)
Quarter: 2023Q1

REPORT INFORMATION
  Report Type: Spontaneous
  Country: US (occurrence: US)
  Receive Date: 20230112
  Receipt Date: 20230112
  Transmission Date: 20230417
  Serious: No
  Sender: FDA-Public Use
  Company Number: US-BRISTOL-MYERS SQUIBB COMPANY-2023-005294

PATIENT
  Age: 75 Year
  Sex: Female
  Weight: 73.94 kg

DRUGS (1)
  1. REVLIMID [Suspect]
     Active Substance: LENALIDOMIDE
     Indication: Plasma cell myeloma
     Dosage: FREQUENCY: DAILYS DAYS 1-21 EVERY 28 DAYS
     Route: 048
     Dates: start: 20221017

REACTIONS (1)
  - Blood calcium decreased [Not Recovered/Not Resolved]
